FAERS Safety Report 10343985 (Version 1)
Quarter: 2014Q3

REPORT INFORMATION
  Report Type: Spontaneous
  Country: US (occurrence: US)
  Receive Date: 20140728
  Receipt Date: 20140728
  Transmission Date: 20150326
  Serious: Yes (Other)
  Sender: FDA-Public Use
  Company Number: US-AMGEN INC.-USASP2014056151

PATIENT
  Age: 3 Year
  Sex: Female

DRUGS (1)
  1. ENBREL [Suspect]
     Active Substance: ETANERCEPT
     Indication: JUVENILE IDIOPATHIC ARTHRITIS
     Dosage: 6.25 MG, 2 TIMES/WK
     Route: 065
     Dates: start: 20140625

REACTIONS (1)
  - Croup infectious [Not Recovered/Not Resolved]

NARRATIVE: CASE EVENT DATE: 201407
